FAERS Safety Report 7275132-3 (Version None)
Quarter: 2011Q1

REPORT INFORMATION
  Report Type: 
  Country: None (occurrence: None)
  Receive Date: 20110204
  Receipt Date: 20110124
  Transmission Date: 20110831
  Serious: Yes (Hospitalization, Other)
  Sender: FDA-Public Use
  Company Number: PHHY2010FR83687

PATIENT
  Sex: Male
  Weight: 73 kg

DRUGS (8)
  1. URAPIDIL [Concomitant]
     Dosage: 60 MG, BID
  2. LERCANIDIPINE [Concomitant]
     Dosage: 20 MG, QD
  3. PINDOLOL [Concomitant]
     Dosage: 5 MG, QD
  4. RASILEZ HCT [Suspect]
     Indication: HYPERTENSION
     Dosage: 1 DF, QD
     Route: 048
     Dates: start: 20101117, end: 20101124
  5. ANTICOAGULANTS [Concomitant]
  6. ANTIARRHYTHMICS, CLASS I AND III [Concomitant]
  7. ANTIHYPERTENSIVE DRUGS [Concomitant]
  8. PREVISCAN [Concomitant]
     Indication: ATRIAL FIBRILLATION
     Dosage: 0.75 DF, UNK

REACTIONS (11)
  - HYPERLIPASAEMIA [None]
  - EOSINOPHILIA [None]
  - GASTROENTERITIS [None]
  - VENTRICULAR EXTRASYSTOLES [None]
  - ARRHYTHMIA [None]
  - RENAL FAILURE ACUTE [None]
  - CREATININE RENAL CLEARANCE DECREASED [None]
  - DIARRHOEA [None]
  - FATIGUE [None]
  - BLOOD PRESSURE DIASTOLIC DECREASED [None]
  - PANCREATITIS ACUTE [None]
